FAERS Safety Report 6099381-5 (Version None)
Quarter: 2009Q1

REPORT INFORMATION
  Report Type: 
  Country: None (occurrence: None)
  Receive Date: 20090303
  Receipt Date: 20090219
  Transmission Date: 20090719
  Serious: Yes (Other)
  Sender: FDA-Public Use
  Company Number: BR-PFIZER INC-2009170969

PATIENT

DRUGS (1)
  1. DEPO-PROVERA [Suspect]
     Indication: CONTRACEPTION
     Dosage: 150 MG, EVERY 3 MONTHS
     Route: 051
     Dates: start: 20081126

REACTIONS (5)
  - AMENORRHOEA [None]
  - DENGUE FEVER [None]
  - HEADACHE [None]
  - MENOMETRORRHAGIA [None]
  - WEIGHT DECREASED [None]
